FAERS Safety Report 8624117-0 (Version None)
Quarter: 2012Q3

REPORT INFORMATION
  Report Type: 
  Country: None (occurrence: None)
  Receive Date: 20120824
  Receipt Date: 20120824
  Transmission Date: 20120928
  Serious: No
  Sender: FDA-Public Use
  Company Number: None

PATIENT
  Age: 44 Year
  Sex: Female
  Weight: 117.028 kg

DRUGS (2)
  1. TRAZODONE HCL [Concomitant]
  2. SAPHRIS [Suspect]
     Indication: BIPOLAR I DISORDER
     Dosage: I SUBLINGUAL BID
     Route: 060
     Dates: start: 20120723, end: 20120731

REACTIONS (6)
  - NAUSEA [None]
  - WEIGHT INCREASED [None]
  - ABDOMINAL PAIN UPPER [None]
  - HEADACHE [None]
  - INCREASED APPETITE [None]
  - HYPOAESTHESIA ORAL [None]
